FAERS Safety Report 23176519 (Version 1)
Quarter: 2023Q4

REPORT INFORMATION
  Report Type: Spontaneous
  Country: GB (occurrence: GB)
  Receive Date: 20231113
  Receipt Date: 20231113
  Transmission Date: 20240110
  Serious: Yes (Other)
  Sender: FDA-Public Use
  Company Number: GB-MHRA-MED-202311050800304450-RYJLM

PATIENT

DRUGS (4)
  1. AMLODIPINE [Suspect]
     Active Substance: AMLODIPINE BESYLATE
     Indication: Hypertension
     Dosage: 5 MILLIGRAM, QD
     Route: 065
     Dates: start: 20230922, end: 20231103
  2. AMITRIPTYLINE [Concomitant]
     Active Substance: AMITRIPTYLINE
     Dosage: UNK
     Route: 065
     Dates: start: 20171110
  3. GABAPENTIN [Concomitant]
     Active Substance: GABAPENTIN
     Indication: Erythromelalgia
     Dosage: UNK
     Route: 065
     Dates: start: 20180614
  4. SERTRALINE [Concomitant]
     Active Substance: SERTRALINE HYDROCHLORIDE
     Indication: Chronic fatigue syndrome
     Dosage: UNK
     Route: 065
     Dates: start: 20171110

REACTIONS (1)
  - Mental disorder [Recovering/Resolving]

NARRATIVE: CASE EVENT DATE: 20231031
